FAERS Safety Report 10100204 (Version 2)
Quarter: 2014Q2

REPORT INFORMATION
  Report Type: Spontaneous
  Country: US (occurrence: US)
  Receive Date: 20140423
  Receipt Date: 20140617
  Transmission Date: 20141212
  Serious: Yes (Hospitalization, Other)
  Sender: FDA-Public Use
  Company Number: US-GILEAD-2014-0100274

PATIENT
  Age: 64 Year
  Sex: Female

DRUGS (17)
  1. LETAIRIS [Suspect]
     Indication: COR PULMONALE CHRONIC
     Dosage: 10 MG, QD
     Route: 065
     Dates: start: 20130425
  2. LETAIRIS [Suspect]
     Indication: SYSTEMIC SCLEROSIS
  3. LETAIRIS [Suspect]
     Indication: PULMONARY HYPERTENSION
  4. LETAIRIS [Suspect]
     Indication: SCLERODERMA
  5. LASIX                              /00032601/ [Concomitant]
  6. BENICAR [Concomitant]
  7. DICYCLOMINE                        /00068601/ [Concomitant]
  8. BONIVA [Concomitant]
  9. PANTOPRAZOLE [Concomitant]
  10. COUMADIN                           /00014802/ [Concomitant]
  11. CREON [Concomitant]
  12. VICODIN [Concomitant]
  13. TRAMADOL [Concomitant]
  14. LACTULOSE [Concomitant]
  15. PROMETHAZINE [Concomitant]
  16. REGLAN                             /00041901/ [Concomitant]
  17. COLACE [Concomitant]

REACTIONS (8)
  - Pancreatitis [Recovered/Resolved]
  - Liver function test abnormal [Recovered/Resolved]
  - Pulmonary oedema [Not Recovered/Not Resolved]
  - Bronchitis [Not Recovered/Not Resolved]
  - Wheezing [Not Recovered/Not Resolved]
  - Productive cough [Not Recovered/Not Resolved]
  - Weight fluctuation [Unknown]
  - Fluid retention [Unknown]
